FAERS Safety Report 22005279 (Version 2)
Quarter: 2023Q2

REPORT INFORMATION
  Report Type: Spontaneous
  Country: JP (occurrence: JP)
  Receive Date: 20230217
  Receipt Date: 20230406
  Transmission Date: 20230722
  Serious: Yes (Hospitalization, Other)
  Sender: FDA-Public Use
  Company Number: JP-BAYER-2023A014766

PATIENT
  Age: 61 Year
  Sex: Male

DRUGS (9)
  1. STIVARGA [Suspect]
     Active Substance: REGORAFENIB
     Indication: Colon cancer
     Dosage: DAILY DOSE 80MG
     Dates: start: 20230116, end: 20230202
  2. STIVARGA [Suspect]
     Active Substance: REGORAFENIB
     Indication: Colon cancer
     Dosage: DAILY DOSE 80MG
  3. METGLUCO [Concomitant]
     Active Substance: METFORMIN HYDROCHLORIDE
     Indication: Diabetes mellitus
     Dosage: UNK
  4. PREGABALIN [Concomitant]
     Active Substance: PREGABALIN
  5. TRANSAMIN [Concomitant]
     Active Substance: TRANEXAMIC ACID
  6. TRAMADOL [Concomitant]
     Active Substance: TRAMADOL
  7. VONOPRAZAN FUMARATE [Concomitant]
     Active Substance: VONOPRAZAN FUMARATE
  8. EMPAGLIFLOZIN\LINAGLIPTIN [Concomitant]
     Active Substance: EMPAGLIFLOZIN\LINAGLIPTIN
  9. PEMAFIBRATE [Concomitant]
     Active Substance: PEMAFIBRATE

REACTIONS (4)
  - Portal hypertension [None]
  - Non-alcoholic fatty liver [Not Recovered/Not Resolved]
  - Melaena [Recovered/Resolved]
  - Off label use [None]

NARRATIVE: CASE EVENT DATE: 20230116
